FAERS Safety Report 19176834 (Version 1)
Quarter: 2021Q2

REPORT INFORMATION
  Report Type: Spontaneous
  Country: US (occurrence: US)
  Receive Date: 20210424
  Receipt Date: 20210424
  Transmission Date: 20210717
  Serious: Yes (Other)
  Sender: FDA-Public Use
  Company Number: US-UCBSA-2021017560

PATIENT

DRUGS (9)
  1. MIDAZOLAM. [Concomitant]
     Active Substance: MIDAZOLAM
     Indication: SEIZURE
     Route: 064
  2. PROPOFOL. [Concomitant]
     Active Substance: PROPOFOL
     Indication: SEIZURE
     Dosage: 55 MCG/KG/MIN
     Route: 064
  3. PENTOBARBITAL. [Concomitant]
     Active Substance: PENTOBARBITAL
     Indication: SEIZURE
     Dosage: 2 MG/KG/H
     Route: 064
  4. LORAZEPAM. [Concomitant]
     Active Substance: LORAZEPAM
     Indication: SEIZURE
     Route: 064
  5. MAGNESIUM [Concomitant]
     Active Substance: MAGNESIUM
     Indication: SEIZURE
     Route: 064
  6. LEVETIRACETAM. [Suspect]
     Active Substance: LEVETIRACETAM
     Indication: SEIZURE
     Dosage: UNK
     Route: 064
  7. FOSPHENYTOIN [Concomitant]
     Active Substance: FOSPHENYTOIN
     Indication: SEIZURE
     Dosage: 100 MILLIGRAM, 3X/DAY (TID)
     Route: 064
  8. LACOSAMIDE. [Suspect]
     Active Substance: LACOSAMIDE
     Indication: SEIZURE
     Dosage: 400 MILLIGRAM, 2X/DAY (BID)
     Route: 064
  9. KETAMINE [Concomitant]
     Active Substance: KETAMINE
     Indication: SEIZURE
     Dosage: 2 MG/KG/H
     Route: 064

REACTIONS (2)
  - Maternal exposure during pregnancy [Unknown]
  - Premature baby [Unknown]
